FAERS Safety Report 5333333-5 (Version None)
Quarter: 2007Q2

REPORT INFORMATION
  Report Type: 
  Country: None (occurrence: None)
  Receive Date: 20070524
  Receipt Date: 20070516
  Transmission Date: 20071010
  Serious: No
  Sender: FDA-Public Use
  Company Number: US-ELI_LILLY_AND_COMPANY-US200608005131

PATIENT
  Age: 82 Year
  Sex: Female

DRUGS (4)
  1. FORTEO [Suspect]
     Indication: OSTEOPOROSIS
     Dosage: UNK, UNK
     Dates: start: 20060601, end: 20060101
  2. FORTEO [Suspect]
     Dosage: UNK, UNKNOWN
     Dates: start: 20061201
  3. FORTEO [Suspect]
     Dates: start: 20060101, end: 20061026
  4. FORTEO [Suspect]
     Dosage: UNK, UNKNOWN
     Dates: start: 20061201

REACTIONS (9)
  - ASTHENIA [None]
  - BURNING SENSATION [None]
  - INJECTION SITE BRUISING [None]
  - JOINT SWELLING [None]
  - LIP DRY [None]
  - LIP SWELLING [None]
  - OEDEMA MOUTH [None]
  - OEDEMA PERIPHERAL [None]
  - SKIN REACTION [None]
